FAERS Safety Report 9514635 (Version 1)
Quarter: 2013Q3

REPORT INFORMATION
  Report Type: Spontaneous
  Country: CZ (occurrence: None)
  Receive Date: 20130906
  Receipt Date: 20130906
  Transmission Date: 20140515
  Serious: Yes (Other)
  Sender: FDA-Public Use
  Company Number: INT_00294_2013

PATIENT
  Age: 34 Year
  Sex: Male

DRUGS (1)
  1. MEROPENEM [Suspect]
     Indication: PANCREATITIS NECROTISING
     Route: 042
     Dates: start: 20130718, end: 20130720

REACTIONS (2)
  - Dermatitis exfoliative [None]
  - Skin exfoliation [None]
